FAERS Safety Report 9061802 (Version 1)
Quarter: 2013Q1

REPORT INFORMATION
  Report Type: Spontaneous
  Country: US (occurrence: None)
  Receive Date: 20130122
  Receipt Date: 20130122
  Transmission Date: 20140127
  Serious: Yes (Other)
  Sender: FDA-Public Use
  Company Number: 2013-00015

PATIENT
  Age: 39 Year
  Sex: Female
  Weight: 49.9 kg

DRUGS (2)
  1. ZICAM ULTRA COLD REMEDY RAPIDMELTS [Suspect]
     Indication: NASOPHARYNGITIS
     Dosage: 1 RAPIDMELT ORALLY
     Route: 048
     Dates: start: 20130106
  2. IBUPROFEN [Concomitant]

REACTIONS (4)
  - Paraesthesia oral [None]
  - Oedema mouth [None]
  - Swelling face [None]
  - Eye swelling [None]
